FAERS Safety Report 18174477 (Version 1)
Quarter: 2020Q3

REPORT INFORMATION
  Report Type: Spontaneous
  Country: US (occurrence: US)
  Receive Date: 20200820
  Receipt Date: 20200820
  Transmission Date: 20201103
  Serious: No
  Sender: FDA-Public Use
  Company Number: US-DRREDDYS-USA/USA/20/0126055

PATIENT
  Age: 30 Year
  Sex: Female

DRUGS (6)
  1. LEVOFLOXACIN TABLETS [Suspect]
     Active Substance: LEVOFLOXACIN
     Indication: ABSCESS
     Route: 048
  2. LINEZOLID. [Concomitant]
     Active Substance: LINEZOLID
     Indication: MYCOBACTERIUM FORTUITUM INFECTION
  3. LEVOFLOXACIN TABLETS [Suspect]
     Active Substance: LEVOFLOXACIN
     Indication: MYCOBACTERIUM FORTUITUM INFECTION
  4. LINEZOLID. [Concomitant]
     Active Substance: LINEZOLID
     Indication: ABSCESS
     Route: 048
  5. SULFAMETHOXAZOLE, TRIMETHOPRIM [Concomitant]
     Active Substance: SULFAMETHOXAZOLE\TRIMETHOPRIM
     Indication: MYCOBACTERIUM FORTUITUM INFECTION
     Route: 048
  6. SULFAMETHOXAZOLE, TRIMETHOPRIM [Concomitant]
     Active Substance: SULFAMETHOXAZOLE\TRIMETHOPRIM
     Indication: ABSCESS

REACTIONS (1)
  - Tendon pain [Unknown]
